FAERS Safety Report 24130802 (Version 1)
Quarter: 2024Q3

REPORT INFORMATION
  Report Type: Report from Study
  Country: US (occurrence: US)
  Receive Date: 20240724
  Receipt Date: 20240724
  Transmission Date: 20241017
  Serious: Yes (Other)
  Sender: BIOGEN
  Company Number: US-BIOGEN-2024BI01270866

PATIENT
  Age: 50 Year
  Sex: Male

DRUGS (1)
  1. SKYCLARYS [Suspect]
     Active Substance: OMAVELOXOLONE
     Indication: Friedreich^s ataxia
     Route: 050
     Dates: start: 20230704

REACTIONS (3)
  - Hip deformity [Recovered/Resolved]
  - Arthritis [Recovered/Resolved]
  - Friedreich^s ataxia [Unknown]

NARRATIVE: CASE EVENT DATE: 20240101
